FAERS Safety Report 10150162 (Version 4)
Quarter: 2014Q2

REPORT INFORMATION
  Report Type: Report from Study
  Country: IE (occurrence: IE)
  Receive Date: 20140502
  Receipt Date: 20140609
  Transmission Date: 20141212
  Serious: Yes (Hospitalization)
  Sender: FDA-Public Use
  Company Number: IE-GLAXOSMITHKLINE-B0990133A

PATIENT
  Age: 43 Year
  Sex: Male
  Weight: 83 kg

DRUGS (3)
  1. PAZOPANIB [Suspect]
     Indication: METASTATIC RENAL CELL CARCINOMA
     Dosage: 800MG PER DAY
     Route: 048
     Dates: start: 20131216, end: 20140408
  2. OXYTOCIN [Suspect]
     Indication: PAIN PROPHYLAXIS
     Dosage: 110MG TWICE PER DAY
  3. MORPHINE [Suspect]
     Indication: PAIN PROPHYLAXIS

REACTIONS (2)
  - Pain [Not Recovered/Not Resolved]
  - Abdominal distension [Recovered/Resolved]
